FAERS Safety Report 10228077 (Version 1)
Quarter: 2014Q2

REPORT INFORMATION
  Report Type: Spontaneous
  Country: US (occurrence: US)
  Receive Date: 20140610
  Receipt Date: 20140610
  Transmission Date: 20141212
  Serious: Yes (Hospitalization)
  Sender: FDA-Public Use
  Company Number: US-BAYER-2014-083055

PATIENT
  Age: 46 Year
  Sex: Female

DRUGS (5)
  1. YASMIN [Suspect]
  2. PRILOSEC [Concomitant]
  3. HYDROCODONE W/APAP [Concomitant]
  4. ETODOLAC [Concomitant]
  5. FLUCONAZOLE [Concomitant]

REACTIONS (1)
  - Deep vein thrombosis [None]
